FAERS Safety Report 9502933 (Version 1)
Quarter: 2013Q1

REPORT INFORMATION
  Report Type: Spontaneous
  Country: US (occurrence: None)
  Receive Date: 20130107
  Receipt Date: 20130107
  Transmission Date: 20140127
  Serious: No
  Sender: FDA-Public Use
  Company Number: PHEH2012US018597

PATIENT
  Age: 38 Year
  Sex: Female
  Weight: 56.2 kg

DRUGS (10)
  1. GILENYA (FTY) CAPSULE, 0.5MG [Suspect]
     Route: 048
  2. ZOLOFT (SERTRALINE HYDROCHLORIDE) TABLET [Concomitant]
  3. MODAFINIL (MODAFINIL) TABLET [Concomitant]
  4. DDAVP (DESMOPRESSIN) TABLET [Concomitant]
  5. MULTIVITAMINS (ASCORBIC ACID, ERGOCALCIFEROL, FOLIC ACID, NICOTINAMIDE, PANTHENOL, RETINOL, RIBOFLAVIN, THIAMINE HYDROCHLORIDE) CAPSULE [Concomitant]
  6. MINERALS NOS (MINERALS NOS) [Concomitant]
  7. GABAPENTIN (GABAPENTIN) CAPSULE [Concomitant]
  8. BACLOFEN (BACLOFEN) TABLET [Concomitant]
  9. VITAMIN D (ERGOCALCIFEROL) CAPSULE [Concomitant]
  10. KEPRA (LEVETIRACETAM) TABLET [Concomitant]

REACTIONS (2)
  - Fall [None]
  - Decreased appetite [None]
